FAERS Safety Report 15279540 (Version 2)
Quarter: 2018Q3

REPORT INFORMATION
  Report Type: Spontaneous
  Country: US (occurrence: US)
  Receive Date: 20180815
  Receipt Date: 20180817
  Transmission Date: 20181010
  Serious: No
  Sender: FDA-Public Use
  Company Number: US-PFIZER INC-2018325575

PATIENT
  Age: 68 Year
  Sex: Male

DRUGS (8)
  1. ADVICOR [Suspect]
     Active Substance: LOVASTATIN\NIACIN
     Dosage: UNK
  2. GLIPIZIDE. [Suspect]
     Active Substance: GLIPIZIDE
     Dosage: UNK
  3. AMBIEN [Suspect]
     Active Substance: ZOLPIDEM TARTRATE
     Dosage: UNK
  4. TRADJENTA [Suspect]
     Active Substance: LINAGLIPTIN
     Dosage: UNK
  5. LISINOPRIL. [Suspect]
     Active Substance: LISINOPRIL
     Dosage: UNK
  6. ACTOS [Suspect]
     Active Substance: PIOGLITAZONE HYDROCHLORIDE
     Dosage: UNK
  7. METFORMIN [Suspect]
     Active Substance: METFORMIN HYDROCHLORIDE
     Dosage: UNK
  8. JANUVIA [Suspect]
     Active Substance: SITAGLIPTIN PHOSPHATE
     Dosage: UNK

REACTIONS (1)
  - Drug hypersensitivity [Unknown]
